FAERS Safety Report 20101392 (Version 1)
Quarter: 2021Q4

REPORT INFORMATION
  Report Type: Spontaneous
  Country: GB (occurrence: GB)
  Receive Date: 20211123
  Receipt Date: 20211123
  Transmission Date: 20220303
  Serious: Yes (Other)
  Sender: FDA-Public Use
  Company Number: None

PATIENT
  Age: 69 Year
  Sex: Male
  Weight: 64 kg

DRUGS (18)
  1. LINEZOLID [Suspect]
     Active Substance: LINEZOLID
     Indication: Product used for unknown indication
     Dosage: UNK (600MG/300ML)
     Route: 065
     Dates: start: 20210927
  2. AMLODIPINE [Concomitant]
     Active Substance: AMLODIPINE BESYLATE
     Indication: Product used for unknown indication
     Dosage: 1 DF, QD (ANTI-XA IU/ML)
     Route: 065
     Dates: start: 20210316
  3. CYCLIZINE [Concomitant]
     Active Substance: CYCLIZINE
     Indication: Product used for unknown indication
     Dosage: 1 DF, TID (ANTI-XA IU/ML)
     Route: 065
     Dates: start: 20210622, end: 20210906
  4. ETORICOXIB [Concomitant]
     Active Substance: ETORICOXIB
     Indication: Product used for unknown indication
     Dosage: 1 DF, QD (*ANTI-XA IU/ML)
     Route: 065
     Dates: start: 20210921
  5. POTASSIUM BICARBONATE\SODIUM ALGINATE [Concomitant]
     Active Substance: POTASSIUM BICARBONATE\SODIUM ALGINATE
     Indication: Product used for unknown indication
     Dosage: UNK (TAKE 5ML - 10ML FOUR TIMES A DAY AFTER MEALS AND AT BEDTIME)
     Route: 065
     Dates: start: 20211010, end: 20211109
  6. HALOPERIDOL [Concomitant]
     Active Substance: HALOPERIDOL
     Indication: Product used for unknown indication
     Dosage: 1 DF, QD (*ANTI-XA IU/ML)
     Route: 065
     Dates: start: 20210923, end: 20211021
  7. IBUPROFEN [Concomitant]
     Active Substance: IBUPROFEN
     Indication: Product used for unknown indication
     Dosage: 1 DF (MAKE SURE TO TAKE OMEPRAZOLE WHILE ON MED TO PROTECT YOUR STOMACH, ANTI-XA IU/ML)
     Route: 065
     Dates: start: 20211004, end: 20211101
  8. INDAPAMIDE [Concomitant]
     Active Substance: INDAPAMIDE
     Indication: Product used for unknown indication
     Dosage: 1 DF, QD (*ANTI-XA IU/ML)
     Route: 065
     Dates: start: 20200408
  9. LEVOMEPROMAZINE [Concomitant]
     Active Substance: LEVOMEPROMAZINE
     Indication: Product used for unknown indication
     Dosage: UNK
     Route: 065
     Dates: start: 20210920, end: 20211018
  10. LORAZEPAM [Concomitant]
     Active Substance: LORAZEPAM
     Indication: Product used for unknown indication
     Dosage: 0.5 DF (ANTI-XA IU/ML)
     Route: 065
     Dates: start: 20210929, end: 20211027
  11. METOCLOPRAMIDE [Concomitant]
     Active Substance: METOCLOPRAMIDE
     Indication: Product used for unknown indication
     Dosage: 1 DF, TID (ANTI-XA IU/ML)
     Route: 065
     Dates: start: 20211028
  12. MORPHINE SULFATE [Concomitant]
     Active Substance: MORPHINE SULFATE
     Indication: Pain
     Dosage: 1 ML ((2 MG) EVERY 3-4 HOURS AS NEED FOR PAIN)
     Route: 065
     Dates: start: 20210609
  13. MORPHINE SULFATE [Concomitant]
     Active Substance: MORPHINE SULFATE
     Indication: Product used for unknown indication
     Dosage: 1 DF, Q12H (ANTI-XA IU/ML)
     Route: 065
     Dates: start: 20210802
  14. OMEPRAZOLE [Concomitant]
     Active Substance: OMEPRAZOLE
     Indication: Product used for unknown indication
     Dosage: 1 DF, QD (TAKE ONE DAILY WHILE ON IBUPROFEN)
     Route: 065
     Dates: start: 20210817, end: 20210914
  15. ACETAMINOPHEN [Concomitant]
     Active Substance: ACETAMINOPHEN
     Indication: Product used for unknown indication
     Dosage: UNK (DISSOLVE ONE OR TWO TABLETS IN WATER AND TAKE FOUR TIMES A DAY WHEN NECESSARY)
     Route: 065
     Dates: start: 20210416
  16. RAMIPRIL [Concomitant]
     Active Substance: RAMIPRIL
     Indication: Product used for unknown indication
     Dosage: 1 DF, QD
     Route: 065
     Dates: start: 20200408
  17. SALT [Concomitant]
     Active Substance: SODIUM CHLORIDE
     Indication: Product used for unknown indication
     Dosage: UNK (USE AS DIRECTED)
     Route: 065
     Dates: start: 20210906, end: 20211004
  18. VENTOLIN [Concomitant]
     Active Substance: ALBUTEROL SULFATE
     Indication: Product used for unknown indication
     Dosage: UNK (INHALE 2 DOSES AS NEEDED)
     Route: 065
     Dates: start: 20211103

REACTIONS (1)
  - Delirium [Recovered/Resolved]

NARRATIVE: CASE EVENT DATE: 20211109
